FAERS Safety Report 24076282 (Version 2)
Quarter: 2024Q3

REPORT INFORMATION
  Report Type: Report from Study
  Country: NL (occurrence: NL)
  Receive Date: 20240711
  Receipt Date: 20240718
  Transmission Date: 20241016
  Serious: Yes (Death, Other)
  Sender: ABBVIE
  Company Number: NL-ABBVIE-5833361

PATIENT
  Sex: Male

DRUGS (10)
  1. CARBIDOPA\LEVODOPA [Suspect]
     Active Substance: CARBIDOPA\LEVODOPA
     Indication: Parkinson^s disease
     Dosage: DURATION TEXT: REMAINS AT 24 HOURS
     Route: 050
     Dates: start: 20170620
  2. CARBIDOPA\LEVODOPA [Suspect]
     Active Substance: CARBIDOPA\LEVODOPA
     Dosage: MD: 9.4; CD: 5.4ML/H; ED: 3,0ML;
     Route: 050
     Dates: start: 20240311, end: 20240711
  3. CARBIDOPA\LEVODOPA [Suspect]
     Active Substance: CARBIDOPA\LEVODOPA
     Dosage: MD: 7.2; CD: 5.4ML/H; ED: 3,0ML; CND:2.2 ML/H END: 3.0 ML, DURATION TEXT: GOES TO 24 HOURS
     Route: 050
     Dates: start: 20231222, end: 20240311
  4. CARBIDOPA\LEVODOPA [Suspect]
     Active Substance: CARBIDOPA\LEVODOPA
     Dosage: MD: 7.2; CD: 5.4ML/H; ED: 3,0ML; CND:2.2 ML/H END: 3.0 ML, DURATION TEXT: REMAINS AT 24 HOURS
     Route: 050
     Dates: start: 20231113, end: 20231222
  5. SINEMET [Concomitant]
     Active Substance: CARBIDOPA\LEVODOPA
     Indication: Product used for unknown indication
  6. MOVICOLON [Concomitant]
     Active Substance: POLYETHYLENE GLYCOL 3350\POTASSIUM CHLORIDE\SODIUM BICARBONATE\SODIUM CHLORIDE
     Indication: Abnormal faeces
  7. RIVOTRIL [Concomitant]
     Active Substance: CLONAZEPAM
     Indication: Abnormal dreams
  8. PRAMIPEXOLE [Concomitant]
     Active Substance: PRAMIPEXOLE\PRAMIPEXOLE DIHYDROCHLORIDE
     Indication: Product used for unknown indication
  9. Levodopa capsules [Concomitant]
     Indication: Product used for unknown indication
  10. RIVASTIGMINE [Concomitant]
     Active Substance: RIVASTIGMINE
     Indication: Product used for unknown indication

REACTIONS (1)
  - Terminal state [Fatal]
